FAERS Safety Report 5298354-X (Version None)
Quarter: 2007Q2

REPORT INFORMATION
  Report Type: 
  Country: None (occurrence: None)
  Receive Date: 20070416
  Receipt Date: 20070404
  Transmission Date: 20071010
  Serious: Yes (Other)
  Sender: FDA-Public Use
  Company Number: AU-PFIZER INC-2007017979

PATIENT
  Sex: Female
  Weight: 95 kg

DRUGS (11)
  1. SALAZOPYRIN EN [Suspect]
     Indication: AUTOIMMUNE DISORDER
     Dates: start: 20061222, end: 20070128
  2. AMARYL [Concomitant]
     Indication: DIABETES MELLITUS
  3. ROSIGLITAZONE [Concomitant]
  4. DIAFORMIN [Concomitant]
     Indication: DIABETES MELLITUS
  5. PRAVASTATIN [Concomitant]
  6. GEMFIBROZIL [Concomitant]
  7. INDAPAMIDE [Concomitant]
  8. ENALAPRIL MALEATE [Concomitant]
  9. PANTOPRAZOLE SODIUM [Concomitant]
     Indication: GASTROOESOPHAGEAL REFLUX DISEASE
  10. BRUFEN [Concomitant]
     Indication: ARTHRITIS
  11. OESTRADIOL [Concomitant]

REACTIONS (3)
  - ABDOMINAL DISCOMFORT [None]
  - BILE OUTPUT INCREASED [None]
  - GASTRITIS [None]
